FAERS Safety Report 9966869 (Version 1)
Quarter: 2014Q1

REPORT INFORMATION
  Report Type: Spontaneous
  Country: NL (occurrence: NL)
  Receive Date: 20140305
  Receipt Date: 20140305
  Transmission Date: 20141002
  Serious: No
  Sender: FDA-Public Use
  Company Number: NL-MERCK-1403NLD002065

PATIENT
  Age: 11 Year
  Sex: Female

DRUGS (2)
  1. CASPOFUNGIN ACETATE [Suspect]
     Indication: ANTIFUNGAL PROPHYLAXIS
  2. VORICONAZOLE [Suspect]

REACTIONS (1)
  - Drug ineffective [Unknown]
